FAERS Safety Report 6494855-7 (Version None)
Quarter: 2009Q4

REPORT INFORMATION
  Report Type: 
  Country: None (occurrence: None)
  Receive Date: 20091214
  Receipt Date: 20090514
  Transmission Date: 20100525
  Serious: No
  Sender: FDA-Public Use
  Company Number: US-BRISTOL-MYERS SQUIBB COMPANY-14570550

PATIENT
  Age: 44 Year
  Sex: Female
  Weight: 49 kg

DRUGS (9)
  1. ABILIFY [Suspect]
     Indication: MAJOR DEPRESSION
     Dosage: DOSE DECREASED TO 5 MG.
     Route: 048
     Dates: end: 20090406
  2. TRAZODONE HCL [Suspect]
     Indication: MAJOR DEPRESSION
  3. PROZAC [Suspect]
     Indication: MAJOR DEPRESSION
  4. REMERON [Suspect]
     Indication: MAJOR DEPRESSION
  5. ELECTROCONVULSIVE THERAPY [Suspect]
  6. COGENTIN [Suspect]
  7. AMBIEN [Concomitant]
  8. MULTI-VITAMIN [Concomitant]
  9. VITAMIN B COMPLEX CAP [Concomitant]

REACTIONS (2)
  - MYDRIASIS [None]
  - VISION BLURRED [None]
